FAERS Safety Report 7021531-4 (Version None)
Quarter: 2010Q3

REPORT INFORMATION
  Report Type: 
  Country: None (occurrence: None)
  Receive Date: 20100929
  Receipt Date: 20100922
  Transmission Date: 20110219
  Serious: Yes (Hospitalization, Other)
  Sender: FDA-Public Use
  Company Number: US-AMGEN-QUU435188

PATIENT
  Sex: Female
  Weight: 52.7 kg

DRUGS (9)
  1. NPLATE [Suspect]
     Indication: IDIOPATHIC THROMBOCYTOPENIC PURPURA
     Dates: start: 20100115
  2. NAMENDA [Concomitant]
  3. CELEXA [Concomitant]
  4. AVAPRO [Concomitant]
  5. RIVASTIGIMINE [Concomitant]
     Route: 062
  6. PNEUMOVAX 23 [Concomitant]
     Dates: start: 20100312, end: 20100312
  7. OSCAL D [Concomitant]
  8. CITALOPRAM HYDROBROMIDE [Concomitant]
  9. MULTI-VITAMINS [Concomitant]

REACTIONS (12)
  - ARTHRALGIA [None]
  - ATAXIA [None]
  - CHEST PAIN [None]
  - FATIGUE [None]
  - HYPERTENSION [None]
  - INCREASED TENDENCY TO BRUISE [None]
  - INJECTION SITE CELLULITIS [None]
  - NOCTURIA [None]
  - OXYGEN SATURATION DECREASED [None]
  - PALPITATIONS [None]
  - PRURITUS [None]
  - TREMOR [None]
